FAERS Safety Report 6369572-4 (Version None)
Quarter: 2009Q3

REPORT INFORMATION
  Report Type: 
  Country: None (occurrence: None)
  Receive Date: 20090923
  Receipt Date: 20090916
  Transmission Date: 20100115
  Serious: Yes (Other)
  Sender: FDA-Public Use
  Company Number: SE-BAYER-200932565GPV

PATIENT

DRUGS (7)
  1. AZITHROMYCIN [Interacting]
     Indication: DRUG USE FOR UNKNOWN INDICATION
  2. SIMVASTATIN [Interacting]
     Indication: DRUG USE FOR UNKNOWN INDICATION
  3. CERIVASTATIN [Suspect]
     Indication: DRUG USE FOR UNKNOWN INDICATION
  4. ATORVASTATIN [Interacting]
     Indication: DRUG USE FOR UNKNOWN INDICATION
  5. LOVASTATIN [Interacting]
     Indication: DRUG USE FOR UNKNOWN INDICATION
  6. PRAVASTATIN [Interacting]
     Indication: DRUG USE FOR UNKNOWN INDICATION
  7. ROSUVASTATIN CALCIUM [Interacting]
     Indication: DRUG USE FOR UNKNOWN INDICATION

REACTIONS (1)
  - RHABDOMYOLYSIS [None]
